FAERS Safety Report 6368332-8 (Version None)
Quarter: 2009Q3

REPORT INFORMATION
  Report Type: 
  Country: None (occurrence: None)
  Receive Date: 20090909
  Receipt Date: 20090529
  Transmission Date: 20100115
  Serious: No
  Sender: FDA-Public Use
  Company Number: 000931

PATIENT
  Sex: Female
  Weight: 63.5 kg

DRUGS (5)
  1. ROTIGOTINE [Suspect]
     Indication: PARKINSONISM
     Dosage: (6 MG QD TRANSDERMAL), (6 MG QD TRANSDERMAL)
     Route: 062
     Dates: start: 20080101, end: 20090101
  2. ROTIGOTINE [Suspect]
     Indication: PARKINSONISM
     Dosage: (6 MG QD TRANSDERMAL), (6 MG QD TRANSDERMAL)
     Route: 062
     Dates: start: 20090101
  3. SINEMET [Concomitant]
  4. KLONOPIN [Concomitant]
  5. GAMUNEX [Concomitant]

REACTIONS (8)
  - DRUG INEFFECTIVE [None]
  - EXPIRED DRUG ADMINISTERED [None]
  - INFLUENZA LIKE ILLNESS [None]
  - MOVEMENT DISORDER [None]
  - MUSCULOSKELETAL STIFFNESS [None]
  - PAIN OF SKIN [None]
  - PRURITUS [None]
  - TREMOR [None]
